FAERS Safety Report 16371805 (Version 2)
Quarter: 2019Q2

REPORT INFORMATION
  Report Type: Spontaneous
  Country: US (occurrence: US)
  Receive Date: 20190530
  Receipt Date: 20190605
  Transmission Date: 20190711
  Serious: No
  Sender: FDA-Public Use
  Company Number: US-PFIZER INC-2019225482

PATIENT
  Age: 68 Year
  Sex: Female
  Weight: 68.27 kg

DRUGS (5)
  1. SENNA [SENNA ALEXANDRINA] [Concomitant]
     Active Substance: SENNA LEAF
     Indication: CONSTIPATION
     Dosage: UNK, 2X/DAY (EVERY MORNING AND EVERY NIGHT)
     Dates: start: 201810
  2. FULVESTRANT. [Suspect]
     Active Substance: FULVESTRANT
     Indication: BREAST CANCER METASTATIC
     Dosage: UNK, MONTHLY (1 INJECTION, ONCE A MONTH)
     Dates: start: 201808
  3. CHLORDIAZEPOXIDE/CLIDINIUM [Concomitant]
     Indication: MUSCLE SPASMS
     Dosage: 1 DF, 4X/DAY
     Route: 048
     Dates: start: 20190404
  4. COLACE [Concomitant]
     Active Substance: DOCUSATE SODIUM
     Indication: CONSTIPATION
     Dosage: UNK (EVERY MORNING AND EVERY NIGHT)
     Dates: start: 201810
  5. IBRANCE [Suspect]
     Active Substance: PALBOCICLIB
     Indication: BREAST CANCER METASTATIC
     Dosage: 125 MG, 1X/DAY
     Route: 048
     Dates: start: 201810

REACTIONS (1)
  - Neoplasm progression [Unknown]
